FAERS Safety Report 15684204 (Version 7)
Quarter: 2019Q1

REPORT INFORMATION
  Report Type: Report from Study
  Country: DE (occurrence: DE)
  Receive Date: 20181204
  Receipt Date: 20190308
  Transmission Date: 20190417
  Serious: Yes (Hospitalization)
  Sender: FDA-Public Use
  Company Number: DE-ACCORD-093379

PATIENT
  Age: 84 Year
  Sex: Male
  Weight: 62.3 kg

DRUGS (17)
  1. IRINOTECAN [Suspect]
     Active Substance: IRINOTECAN
     Indication: COLORECTAL CANCER
     Dosage: 35 MG FROM 12-MAY-2016
     Route: 042
     Dates: start: 20160610
  2. FLUOROURACIL. [Concomitant]
     Active Substance: FLUOROURACIL
     Route: 040
     Dates: start: 20160610
  3. AVASTIN [Suspect]
     Active Substance: BEVACIZUMAB
     Indication: COLORECTAL CANCER
     Route: 042
     Dates: start: 20160610
  4. SULFAMETHOXAZOLE/TRIMETHOPRIM [Suspect]
     Active Substance: SULFAMETHOXAZOLE\TRIMETHOPRIM
     Indication: PRODUCT USED FOR UNKNOWN INDICATION
     Route: 048
     Dates: start: 20180103, end: 20180112
  5. FLUOROURACIL. [Concomitant]
     Active Substance: FLUOROURACIL
     Dosage: ALSO RECEIVED IN 12-MAY-2016 TO 20-JAN-2017
     Route: 041
     Dates: start: 20160610, end: 20160611
  6. DIFLUCAN [Concomitant]
     Active Substance: FLUCONAZOLE
     Dosage: ADDITIONAL DOSE WAS TAKEN
     Route: 048
     Dates: start: 20170130, end: 20170219
  7. PEGYLATED LIPOSOMAL IRINOTECAN [Suspect]
     Active Substance: IRINOTECAN HYDROCHLORIDE
     Indication: PRODUCT USED FOR UNKNOWN INDICATION
     Dosage: 220MG 19-JAN-2017 TO 19-JAN-2017
     Route: 042
     Dates: start: 20160512
  8. FOLINIC ACID [Suspect]
     Active Substance: LEUCOVORIN
     Indication: PRODUCT USED FOR UNKNOWN INDICATION
     Dosage: ALSO RECEIVED 670 MG ,ALSO TAKEN ON 10-JUN-2016 TO 20-JAN-2017, 490-700 MG
     Route: 042
     Dates: start: 20160512, end: 20170119
  9. FLUOROURACIL. [Concomitant]
     Active Substance: FLUOROURACIL
     Route: 041
     Dates: start: 20160512, end: 20160513
  10. FLUOROURACIL. [Suspect]
     Active Substance: FLUOROURACIL
     Indication: PRODUCT USED FOR UNKNOWN INDICATION
     Dosage: 490-700 MG,2990-4200 MG
     Route: 040
     Dates: start: 20160512, end: 20170120
  11. FLUOROURACIL. [Concomitant]
     Active Substance: FLUOROURACIL
     Indication: COLORECTAL CANCER
     Route: 040
     Dates: start: 20160512
  12. SPASMEX [Concomitant]
     Route: 048
  13. AVASTIN [Suspect]
     Active Substance: BEVACIZUMAB
     Route: 042
     Dates: start: 20170119
  14. CLEXAN [Concomitant]
     Active Substance: ENOXAPARIN SODIUM
     Indication: THROMBOSIS PROPHYLAXIS
     Dosage: ADDITIONAL DOSE WAS TAKEN
     Route: 058
     Dates: start: 20160512, end: 2017
  15. DEXAMETHASONE. [Suspect]
     Active Substance: DEXAMETHASONE
     Indication: DECREASED APPETITE
     Route: 048
     Dates: start: 20161215
  16. BRISERIN [Concomitant]
     Indication: HYPERTENSION
     Dosage: ADDITIONAL DOSE WAS TAKEN
     Route: 048
  17. PREDNISOLONE. [Concomitant]
     Active Substance: PREDNISOLONE
     Indication: MUCOSAL INFLAMMATION
     Dosage: 50 MG (30-JAN-2017 TO 02-FEB-2017)
     Route: 042
     Dates: start: 20170130, end: 20170210

REACTIONS (5)
  - Mucosal inflammation [Recovered/Resolved]
  - Condition aggravated [Not Recovered/Not Resolved]
  - Decreased appetite [Not Recovered/Not Resolved]
  - Oral pain [Recovered/Resolved]
  - Fatigue [Not Recovered/Not Resolved]

NARRATIVE: CASE EVENT DATE: 20160617
